FAERS Safety Report 9407302 (Version 1)
Quarter: 2013Q3

REPORT INFORMATION
  Report Type: Spontaneous
  Country: SE (occurrence: SE)
  Receive Date: 20130718
  Receipt Date: 20130718
  Transmission Date: 20140515
  Serious: Yes (Death, Hospitalization, Other)
  Sender: FDA-Public Use
  Company Number: SE-PFIZER INC-2013207035

PATIENT
  Age: 71 Year
  Sex: Female

DRUGS (11)
  1. SUTENT [Suspect]
     Indication: RENAL CANCER METASTATIC
     Dosage: 50 MG, 1X/DAY
     Route: 048
     Dates: start: 20130214, end: 20130319
  2. ALVEDON [Concomitant]
     Dosage: 665 MG, UNK
  3. ENALAPRIL ACTAVIS [Concomitant]
     Dosage: 10 MG, UNK
  4. ZOMETA [Concomitant]
  5. OMEPRAZOL ACTAVIS [Concomitant]
     Dosage: 20 MG, UNK
  6. BETAPRED [Concomitant]
     Dosage: 0.5 MG, UNK
  7. DOLCONTIN [Concomitant]
     Dosage: 10 MG, UNK
  8. DOLCONTIN [Concomitant]
     Dosage: 30 MG, UNK
  9. MOVICOL [Concomitant]
  10. CILAXORAL [Concomitant]
  11. PROPYLESS [Concomitant]

REACTIONS (7)
  - Peritonitis [Fatal]
  - Gastrointestinal haemorrhage [Fatal]
  - Arthralgia [Unknown]
  - Stomatitis [Unknown]
  - Wound [Unknown]
  - Eye disorder [Unknown]
  - Hypertension [Unknown]
